FAERS Safety Report 5059491-8 (Version None)
Quarter: 2006Q3

REPORT INFORMATION
  Report Type: 
  Country: None (occurrence: None)
  Receive Date: 20060724
  Receipt Date: 20060713
  Transmission Date: 20061208
  Serious: Yes (Other)
  Sender: FDA-Public Use
  Company Number: PHFR2006GB02231

PATIENT
  Sex: Male

DRUGS (1)
  1. ZOMETA [Suspect]
     Indication: PROSTATE CANCER
     Dosage: 4MG
     Route: 042

REACTIONS (3)
  - ABNORMAL BEHAVIOUR [None]
  - FLIGHT OF IDEAS [None]
  - PSYCHOTIC DISORDER [None]
